FAERS Safety Report 11596072 (Version 2)
Quarter: 2015Q4

REPORT INFORMATION
  Report Type: Report from Study
  Country: DE (occurrence: DE)
  Receive Date: 20151006
  Receipt Date: 20151007
  Transmission Date: 20160304
  Serious: Yes (Other)
  Sender: FDA-Public Use
  Company Number: DE-009507513-1509DEU013754

PATIENT

DRUGS (6)
  1. REMIFENTANIL HYDROCHLORIDE [Concomitant]
     Active Substance: REMIFENTANIL HYDROCHLORIDE
     Dosage: MAINTAINED WITH MICROGRAM PER KILOGRAM/H
  2. SUGAMMADEX SODIUM [Suspect]
     Active Substance: SUGAMMADEX SODIUM
     Indication: NEUROMUSCULAR BLOCKADE REVERSAL
     Dosage: 0.5 MG/KG, ONCE
     Route: 051
  3. PROPOFOL. [Concomitant]
     Active Substance: PROPOFOL
     Indication: ANAESTHESIA
     Dosage: 1-2 MG/KG, UNK
  4. PROPOFOL. [Concomitant]
     Active Substance: PROPOFOL
     Dosage: MAINTAINED WITH 4-5 MG/KG/H
  5. ROCURONIUM BROMIDE. [Suspect]
     Active Substance: ROCURONIUM BROMIDE
     Indication: NEUROMUSCULAR BLOCKADE
     Dosage: 0.25 MG/KG, ONCE
     Route: 051
  6. REMIFENTANIL HYDROCHLORIDE [Concomitant]
     Active Substance: REMIFENTANIL HYDROCHLORIDE
     Indication: ANAESTHESIA
     Dosage: 0.5 MICROGRAM PER KILOGRAM

REACTIONS (1)
  - Myalgia [Unknown]
